FAERS Safety Report 10675972 (Version 3)
Quarter: 2017Q3

REPORT INFORMATION
  Report Type: Spontaneous
  Country: US (occurrence: US)
  Receive Date: 20141225
  Receipt Date: 20170706
  Transmission Date: 20171127
  Serious: Yes (Hospitalization, Other)
  Sender: FDA-Public Use
  Company Number: US-JNJFOC-20141212619

PATIENT
  Age: 15 Year
  Sex: Female

DRUGS (3)
  1. ASPIRIN. [Suspect]
     Active Substance: ASPIRIN
     Indication: PRODUCT USED FOR UNKNOWN INDICATION
     Dosage: 1/4 OF A BOTTLE OF 325MG SALICYLATE TABS (APPROX. 8000MG OR 135MG/KG) (APPROX 25 TABLETS)
     Route: 048
  2. BISMUTH SALICYLATE [Suspect]
     Active Substance: BISMUTH TRISALICYLATE
     Indication: PRODUCT USED FOR UNKNOWN INDICATION
     Route: 048
  3. IBUPROFEN. [Suspect]
     Active Substance: IBUPROFEN
     Indication: PRODUCT USED FOR UNKNOWN INDICATION
     Route: 048

REACTIONS (10)
  - Metabolic acidosis [Recovering/Resolving]
  - Abdominal pain [Recovering/Resolving]
  - Bezoar [Recovered/Resolved]
  - Tachypnoea [Recovering/Resolving]
  - Abdominal discomfort [Recovering/Resolving]
  - Intentional overdose [Unknown]
  - Nausea [Recovering/Resolving]
  - Toxicity to various agents [Recovering/Resolving]
  - Tinnitus [Recovering/Resolving]
  - Suicide attempt [Unknown]
